FAERS Safety Report 4598305-7 (Version None)
Quarter: 2005Q1

REPORT INFORMATION
  Report Type: 
  Country: None (occurrence: None)
  Receive Date: 20050302
  Receipt Date: 20050302
  Transmission Date: 20050727
  Serious: Yes (Other)
  Sender: FDA-Public Use
  Company Number: None

PATIENT
  Age: 72 Year
  Sex: Male
  Weight: 74.8435 kg

DRUGS (9)
  1. CEFAZOLIN [Suspect]
     Indication: OSTEOMYELITIS
     Dosage: 1 GM  Q8H  IV
     Route: 042
     Dates: start: 20050209, end: 20050301
  2. LANTUS [Concomitant]
  3. HUMALOG [Concomitant]
  4. TIAZAC [Concomitant]
  5. SYNTHROID [Concomitant]
  6. PRILOSEC [Concomitant]
  7. PLAVIX [Concomitant]
  8. LIPITOR [Concomitant]
  9. ACCUPRIL [Concomitant]

REACTIONS (2)
  - DRY SKIN [None]
  - RASH [None]
